FAERS Safety Report 6663972-0 (Version None)
Quarter: 2010Q2

REPORT INFORMATION
  Report Type: 
  Country: None (occurrence: None)
  Receive Date: 20100401
  Receipt Date: 20100324
  Transmission Date: 20101027
  Serious: Yes (Hospitalization)
  Sender: FDA-Public Use
  Company Number: US-BAXTER-2010BH007136

PATIENT
  Age: 88 Year
  Sex: Male

DRUGS (4)
  1. DIANEAL [Suspect]
     Indication: BLOOD CREATINE INCREASED
     Route: 033
     Dates: start: 20100215, end: 20100219
  2. DIANEAL [Suspect]
     Indication: BLOOD UREA INCREASED
     Route: 033
     Dates: start: 20100215, end: 20100219
  3. EXTRANEAL [Suspect]
     Indication: BLOOD CREATININE INCREASED
     Route: 033
     Dates: start: 20100215, end: 20100219
  4. EXTRANEAL [Suspect]
     Indication: BLOOD UREA INCREASED
     Route: 033
     Dates: start: 20100215, end: 20100219

REACTIONS (1)
  - MEDICAL DEVICE COMPLICATION [None]
